FAERS Safety Report 19881614 (Version 1)
Quarter: 2021Q3

REPORT INFORMATION
  Report Type: Spontaneous
  Country: CH (occurrence: CH)
  Receive Date: 20210924
  Receipt Date: 20210924
  Transmission Date: 20211014
  Serious: Yes (Other)
  Sender: FDA-Public Use
  Company Number: CH-SLATE RUN PHARMACEUTICALS-21CH000691

PATIENT

DRUGS (7)
  1. GANCICLOVIR USP [Suspect]
     Active Substance: GANCICLOVIR
     Indication: CYTOMEGALOVIRUS INFECTION
     Dosage: UNK
     Route: 042
  2. VALGANCICLOVIR. [Concomitant]
     Active Substance: VALGANCICLOVIR
     Indication: PRODUCT USED FOR UNKNOWN INDICATION
     Route: 048
  3. GANCICLOVIR USP [Suspect]
     Active Substance: GANCICLOVIR
     Dosage: UNK
  4. CYCLOSPORINE. [Concomitant]
     Active Substance: CYCLOSPORINE
     Indication: IMMUNOSUPPRESSANT DRUG THERAPY
     Dosage: UNK
  5. GANCICLOVIR USP [Suspect]
     Active Substance: GANCICLOVIR
     Indication: PROPHYLAXIS
     Dosage: 2.5 MILLIGRAM PER KILOGRAM, BID
     Route: 042
  6. AZATHIOPRINE. [Concomitant]
     Active Substance: AZATHIOPRINE
     Indication: IMMUNOSUPPRESSANT DRUG THERAPY
  7. PREDNISONE. [Concomitant]
     Active Substance: PREDNISONE
     Indication: IMMUNOSUPPRESSANT DRUG THERAPY

REACTIONS (6)
  - Drug resistance [Unknown]
  - Glomerular filtration rate decreased [Unknown]
  - Cytomegalovirus chorioretinitis [Recovering/Resolving]
  - Cytomegalovirus gastroenteritis [Recovered/Resolved]
  - Treatment failure [Unknown]
  - Prescribed overdose [Recovered/Resolved]
